FAERS Safety Report 4898210-2 (Version None)
Quarter: 2006Q1

REPORT INFORMATION
  Report Type: 
  Country: None (occurrence: None)
  Receive Date: 20060201
  Receipt Date: 20060127
  Transmission Date: 20060701
  Serious: Yes (Hospitalization)
  Sender: FDA-Public Use
  Company Number: US-MERCK-0601USA03548

PATIENT
  Age: 53 Year
  Sex: Male
  Weight: 76 kg

DRUGS (5)
  1. VIOXX [Suspect]
     Indication: TENDONITIS
     Route: 048
     Dates: start: 20010917, end: 20020201
  2. VIOXX [Suspect]
     Indication: EPICONDYLITIS
     Route: 048
     Dates: start: 20010917, end: 20020201
  3. GLUCOTROL XL [Concomitant]
     Route: 065
  4. KEFLEX [Suspect]
     Route: 048
     Dates: start: 20011008
  5. METRONIDAZOLE [Suspect]
     Route: 065

REACTIONS (20)
  - ACUTE MYOCARDIAL INFARCTION [None]
  - APPENDICITIS [None]
  - ARTHRITIS [None]
  - BACK PAIN [None]
  - BLOOD CHOLESTEROL DECREASED [None]
  - BLOOD PRESSURE INCREASED [None]
  - BLOOD TESTOSTERONE DECREASED [None]
  - CLOSTRIDIAL INFECTION [None]
  - CONTUSION [None]
  - CORONARY ARTERY DISEASE [None]
  - DYSLIPIDAEMIA [None]
  - GASTROINTESTINAL HAEMORRHAGE [None]
  - HYPOACUSIS [None]
  - HYPOGLYCAEMIA [None]
  - HYPOGONADISM [None]
  - LOCALISED INFECTION [None]
  - LOOSE BODY IN JOINT [None]
  - NAIL BED INFECTION [None]
  - NEUROPATHY PERIPHERAL [None]
  - SINUS ARRHYTHMIA [None]
